FAERS Safety Report 9158213 (Version 2)
Quarter: 2013Q1

REPORT INFORMATION
  Report Type: Spontaneous
  Country: US (occurrence: US)
  Receive Date: 20130312
  Receipt Date: 20130319
  Transmission Date: 20140127
  Serious: Yes (Hospitalization, Other)
  Sender: FDA-Public Use
  Company Number: US-ALEXION-A201300389

PATIENT
  Age: 75 Year
  Sex: Female

DRUGS (6)
  1. SOLIRIS 300MG [Suspect]
     Indication: PAROXYSMAL NOCTURNAL HAEMOGLOBINURIA
     Dosage: 900 MG, Q2W
     Route: 042
  2. WARFARIN [Suspect]
     Dosage: UNK
  3. DANAZOL [Concomitant]
     Dosage: UNK
  4. DIGOXIN [Concomitant]
     Dosage: UNK
  5. GABAPENTIN [Concomitant]
     Dosage: UNK
  6. METOPROLOL [Concomitant]
     Dosage: UNK

REACTIONS (8)
  - Pulmonary embolism [Unknown]
  - Atrial fibrillation [Unknown]
  - Pneumonia [Unknown]
  - Haemoglobin decreased [Unknown]
  - Haemoglobinuria [Not Recovered/Not Resolved]
  - Anticoagulation drug level above therapeutic [Unknown]
  - Blood glucose increased [Unknown]
  - International normalised ratio increased [Unknown]
